FAERS Safety Report 4447430-X (Version None)
Quarter: 2004Q3

REPORT INFORMATION
  Report Type: 
  Country: None (occurrence: None)
  Receive Date: 20040913
  Receipt Date: 20040830
  Transmission Date: 20050211
  Serious: Yes (Death, Hospitalization)
  Sender: FDA-Public Use
  Company Number: JP-JNJFOC-20040705679

PATIENT
  Sex: Female
  Weight: 70 kg

DRUGS (19)
  1. REMICADE [Suspect]
     Route: 042
  2. REMICADE [Suspect]
     Route: 042
  3. REMICADE [Suspect]
     Route: 042
  4. REMICADE [Suspect]
     Indication: RHEUMATOID ARTHRITIS
     Route: 042
  5. METHOTREXATE [Concomitant]
  6. METHOTREXATE [Concomitant]
     Dosage: 3 CAPSULES
  7. METHOTREXATE [Concomitant]
     Dosage: 3 CAPSULES
  8. LIPITOR [Concomitant]
  9. MEDROL [Concomitant]
     Route: 049
  10. MEDROL [Concomitant]
     Route: 049
  11. VOLTAREN-XR [Concomitant]
     Route: 049
  12. RHEUMATREX [Concomitant]
     Route: 049
     Dates: start: 20031001
  13. MUCOSAL-L [Concomitant]
     Route: 049
  14. MUCODYNE [Concomitant]
     Dosage: 6 TABLETS
     Route: 049
  15. SINGULAIR [Concomitant]
     Route: 049
  16. THEO-DUR [Concomitant]
     Route: 049
  17. CLARITHROMYCIN [Concomitant]
     Route: 049
  18. TERSIGAN [Concomitant]
     Route: 055
  19. FLUTICASONE PROPIONATE [Concomitant]
     Route: 055

REACTIONS (1)
  - PNEUMOCYSTIS CARINII PNEUMONIA [None]
